FAERS Safety Report 6371446-X (Version None)
Quarter: 2009Q3

REPORT INFORMATION
  Report Type: 
  Country: None (occurrence: None)
  Receive Date: 20090923
  Receipt Date: 20071109
  Transmission Date: 20100115
  Serious: Yes (Other)
  Sender: FDA-Public Use
  Company Number: US-ASTRAZENECA-2007UW13892

PATIENT
  Sex: Male
  Weight: 95.3 kg

DRUGS (11)
  1. SEROQUEL [Suspect]
     Indication: SLEEP DISORDER
     Route: 048
     Dates: start: 20030601, end: 20070101
  2. SEROQUEL [Suspect]
     Route: 048
     Dates: start: 20040219
  3. SEROQUEL [Suspect]
     Route: 048
     Dates: start: 20040907
  4. SEROQUEL [Suspect]
     Dosage: 200 MG AT NIGHT FOR 1 WEEK AND 100 MG AT NIGHT FOR 1 WEEK AND THEN DISCONTINUE
     Route: 048
     Dates: start: 20061220, end: 20070101
  5. SIMVASTATIN [Concomitant]
     Dosage: 20 MG-80 MG
     Route: 048
     Dates: start: 20031122
  6. LISINOPRIL [Concomitant]
     Dosage: 20 MG-40 MG
     Route: 048
     Dates: start: 20040409
  7. ASPIRIN [Concomitant]
     Indication: CEREBROVASCULAR ACCIDENT
     Route: 048
     Dates: start: 20031125
  8. DEPAKOTE [Concomitant]
     Indication: BIPOLAR DISORDER
     Dosage: 750 MG-1000 MG
     Route: 048
     Dates: start: 20030803
  9. METFORMIN HCL [Concomitant]
     Indication: DIABETES MELLITUS
     Route: 048
     Dates: start: 20031117
  10. CITALOPRAM [Concomitant]
     Route: 048
     Dates: start: 20031128, end: 20070608
  11. TRAZODONE [Concomitant]
     Indication: INSOMNIA
     Route: 048
     Dates: start: 20031125

REACTIONS (1)
  - PANCREATITIS ACUTE [None]
